FAERS Safety Report 5337061-1 (Version None)
Quarter: 2007Q2

REPORT INFORMATION
  Report Type: 
  Country: None (occurrence: None)
  Receive Date: 20070529
  Receipt Date: 20070517
  Transmission Date: 20071010
  Serious: Yes (Hospitalization, Disabling, Other)
  Sender: FDA-Public Use
  Company Number: GB-ELI_LILLY_AND_COMPANY-GB200705004376

PATIENT
  Age: 36 Year
  Sex: Female
  Weight: 52 kg

DRUGS (5)
  1. CYMBALTA [Suspect]
     Indication: DEPRESSION
     Dosage: 60 MG, UNK
     Route: 048
     Dates: start: 20051206, end: 20070306
  2. ETORICOXIB [Concomitant]
     Indication: BACK PAIN
     Dosage: 60 MG, DAILY (1/D)
     Route: 048
     Dates: start: 20060328, end: 20060520
  3. LACTULOSE [Concomitant]
     Indication: CONSTIPATION
     Dosage: 20 MG, 2/D
     Route: 048
     Dates: start: 20060907, end: 20061001
  4. OMEPRAZOLE [Concomitant]
     Indication: ABDOMINAL PAIN
     Dosage: 20 MG, UNK
     Route: 048
     Dates: start: 20061229, end: 20070110
  5. TRAMADOL HCL [Concomitant]
     Indication: COLITIS
     Dosage: 100 MG, 4/D
     Route: 048
     Dates: start: 20061221, end: 20070110

REACTIONS (2)
  - ARTHRITIS [None]
  - COLITIS [None]
